FAERS Safety Report 7691181-5 (Version None)
Quarter: 2011Q3

REPORT INFORMATION
  Report Type: 
  Country: None (occurrence: None)
  Receive Date: 20110818
  Receipt Date: 20110812
  Transmission Date: 20111222
  Serious: Yes (Hospitalization)
  Sender: FDA-Public Use
  Company Number: US-VERTEX PHARMACEUTICALS INC.-AE-2011-000877

PATIENT
  Sex: Male
  Weight: 122.58 kg

DRUGS (6)
  1. INCIVEK [Suspect]
     Indication: HEPATITIS C
     Route: 048
     Dates: start: 20110614, end: 20110729
  2. RIBAVIRIN [Concomitant]
     Indication: HEPATITIS C
     Dates: start: 20110614, end: 20110729
  3. LASIX [Concomitant]
     Route: 048
     Dates: start: 20090101
  4. ZOLPIDEM [Concomitant]
     Dates: start: 20010101
  5. PEGASYS [Concomitant]
     Indication: HEPATITIS C
     Route: 058
     Dates: start: 20110614, end: 20110729
  6. POTASSIUM CHLORIDE [Concomitant]
     Indication: HYPOKALAEMIA
     Route: 048
     Dates: start: 20090101

REACTIONS (10)
  - DIZZINESS [None]
  - FAECAL INCONTINENCE [None]
  - SWELLING [None]
  - DISORIENTATION [None]
  - URINARY INCONTINENCE [None]
  - ASTHENIA [None]
  - DYSPNOEA [None]
  - DECREASED APPETITE [None]
  - DYSPHONIA [None]
  - BALANCE DISORDER [None]
